FAERS Safety Report 14072486 (Version 1)
Quarter: 2017Q4

REPORT INFORMATION
  Report Type: Spontaneous
  Country: US (occurrence: None)
  Receive Date: 20171011
  Receipt Date: 20171011
  Transmission Date: 20180321
  Serious: Yes (Hospitalization)
  Sender: FDA-Public Use
  Company Number: None

PATIENT
  Age: 61 Year
  Sex: Male
  Weight: 61.6 kg

DRUGS (1)
  1. MEMANTINE HYDROCHLORIDE. [Suspect]
     Active Substance: MEMANTINE HYDROCHLORIDE
     Dates: end: 20171002

REACTIONS (11)
  - Chest injury [None]
  - Hypotension [None]
  - General physical health deterioration [None]
  - Haemoglobin decreased [None]
  - Dizziness [None]
  - Oxygen saturation decreased [None]
  - Fatigue [None]
  - Asthenia [None]
  - Fall [None]
  - Haemodynamic instability [None]
  - Heart rate increased [None]

NARRATIVE: CASE EVENT DATE: 20171003
